FAERS Safety Report 14568588 (Version 1)
Quarter: 2018Q1

REPORT INFORMATION
  Report Type: Spontaneous
  Country: US (occurrence: US)
  Receive Date: 20180223
  Receipt Date: 20180223
  Transmission Date: 20180509
  Serious: Yes (Other)
  Sender: FDA-Public Use
  Company Number: US-TEVA-2018-US-852998

PATIENT
  Sex: Male

DRUGS (3)
  1. BACLOFEN. [Suspect]
     Active Substance: BACLOFEN
     Dosage: 20 MILLIGRAM DAILY; IN PM
     Route: 048
     Dates: end: 201712
  2. LIORESAL [Suspect]
     Active Substance: BACLOFEN
     Dosage: 100 MICROGRAM DAILY; 500 MICROGRAM/ML
     Route: 037
     Dates: start: 20171229
  3. BACLOFEN. [Suspect]
     Active Substance: BACLOFEN
     Dosage: 15 MILLIGRAM DAILY; IN AM
     Route: 048
     Dates: end: 201712

REACTIONS (1)
  - Drug withdrawal syndrome [Unknown]

NARRATIVE: CASE EVENT DATE: 201712
